FAERS Safety Report 6956425-3 (Version None)
Quarter: 2010Q3

REPORT INFORMATION
  Report Type: 
  Country: None (occurrence: None)
  Receive Date: 20100830
  Receipt Date: 20100819
  Transmission Date: 20110219
  Serious: Yes (Other)
  Sender: FDA-Public Use
  Company Number: B0671601A

PATIENT
  Sex: Female
  Weight: 54 kg

DRUGS (3)
  1. LAPATINIB [Suspect]
     Indication: BREAST CANCER
     Dosage: 1250MG PER DAY
     Route: 048
     Dates: start: 20090610, end: 20091027
  2. PACLITAXEL [Suspect]
     Indication: BREAST CANCER
     Dosage: 269.5MG EVERY 3 WEEKS
     Route: 042
     Dates: start: 20090610, end: 20090923
  3. MYOCET [Suspect]
     Indication: BREAST CANCER
     Dosage: 92.4MG EVERY 3 WEEKS
     Route: 042
     Dates: start: 20090610, end: 20090923

REACTIONS (1)
  - NEUTROPENIA [None]
